FAERS Safety Report 4713669-9 (Version None)
Quarter: 2005Q3

REPORT INFORMATION
  Report Type: 
  Country: None (occurrence: None)
  Receive Date: 20050712
  Receipt Date: 20050628
  Transmission Date: 20060218
  Serious: Yes (Hospitalization)
  Sender: FDA-Public Use
  Company Number: TCI2005A03008

PATIENT
  Age: 68 Year
  Sex: Female

DRUGS (7)
  1. ACTOS [Suspect]
     Indication: DIABETES MELLITUS
     Dosage: 15 MG (15 MG,1 IN 1 D),PER ORAL
     Route: 048
     Dates: start: 20050603, end: 20050616
  2. SERMION (NICERGOLINE) [Concomitant]
  3. METHYCOBAL (MECOBALAMIN) [Concomitant]
  4. ALDACTONE [Concomitant]
  5. DIART (AZOSEMIDE) [Concomitant]
  6. NORVASC [Concomitant]
  7. JUVELA N (TOCOPHERYL NICOTINATE) [Concomitant]

REACTIONS (3)
  - GINGIVAL BLEEDING [None]
  - PLATELET COUNT DECREASED [None]
  - PURPURA [None]
